FAERS Safety Report 9332966 (Version 1)
Quarter: 2013Q2

REPORT INFORMATION
  Report Type: Spontaneous
  Country: US (occurrence: None)
  Receive Date: 20130603
  Receipt Date: 20130603
  Transmission Date: 20140414
  Serious: Yes (Life-Threatening, Hospitalization)
  Sender: FDA-Public Use
  Company Number: 2013AP005687

PATIENT
  Age: 56 Year
  Sex: Female

DRUGS (1)
  1. METFORMIN HCL [Suspect]
     Indication: TYPE 2 DIABETES MELLITUS

REACTIONS (7)
  - Lactic acidosis [None]
  - Cardiac arrest [None]
  - Flank pain [None]
  - Septic shock [None]
  - Blood glucose increased [None]
  - Blood creatinine increased [None]
  - Pulseless electrical activity [None]
